FAERS Safety Report 4636992-5 (Version None)
Quarter: 2005Q2

REPORT INFORMATION
  Report Type: 
  Country: None (occurrence: None)
  Receive Date: 20050414
  Receipt Date: 20050401
  Transmission Date: 20051028
  Serious: Yes (Hospitalization)
  Sender: FDA-Public Use
  Company Number: 2005BI002302

PATIENT
  Age: 59 Year
  Sex: Female
  Weight: 56.6996 kg

DRUGS (8)
  1. AVONEX [Suspect]
     Indication: MULTIPLE SCLEROSIS
     Dosage: 30 UG QW IM
     Route: 030
     Dates: start: 19970101, end: 20031001
  2. SYNTHROID [Concomitant]
  3. DIOVAN [Concomitant]
  4. ASPIRIN [Concomitant]
  5. CALCIUM GLUCONATE [Concomitant]
  6. WELCHOL [Concomitant]
  7. IBUPROFEN [Concomitant]
  8. REBIF [Concomitant]

REACTIONS (6)
  - BLOOD POTASSIUM DECREASED [None]
  - COUGH [None]
  - DEHYDRATION [None]
  - DYSSTASIA [None]
  - ERYTHEMA [None]
  - HEART RATE INCREASED [None]
